FAERS Safety Report 17762107 (Version 1)
Quarter: 2020Q2

REPORT INFORMATION
  Report Type: Spontaneous
  Country: AU (occurrence: AU)
  Receive Date: 20200508
  Receipt Date: 20200508
  Transmission Date: 20200714
  Serious: Yes (Death, Hospitalization, Other)
  Sender: FDA-Public Use
  Company Number: NVSC2020AU124548

PATIENT
  Age: 77 Year
  Sex: Male

DRUGS (2)
  1. FOLINIC ACID [Concomitant]
     Active Substance: LEUCOVORIN
     Indication: PRODUCT USED FOR UNKNOWN INDICATION
     Dosage: UNK
     Route: 042
  2. METHOTREXATE. [Suspect]
     Active Substance: METHOTREXATE
     Indication: PSORIASIS
     Dosage: 5 MG, QD
     Route: 048

REACTIONS (8)
  - Pyrexia [Unknown]
  - Toxicity to various agents [Fatal]
  - Condition aggravated [Unknown]
  - Mouth ulceration [Unknown]
  - Sepsis [Unknown]
  - Bone marrow failure [Unknown]
  - End stage renal disease [Unknown]
  - Rash [Unknown]
